FAERS Safety Report 9086062 (Version 1)
Quarter: 2013Q1

REPORT INFORMATION
  Report Type: Report from Study
  Country: US (occurrence: US)
  Receive Date: 20130131
  Receipt Date: 20130131
  Transmission Date: 20140127
  Serious: No
  Sender: FDA-Public Use
  Company Number: US-ABBOTT-12P-163-0995173-00

PATIENT
  Age: 58 Year
  Sex: Female

DRUGS (16)
  1. HUMIRA [Suspect]
     Indication: CROHN^S DISEASE
     Dates: start: 20120809
  2. AMLODIPINE BESYLATE [Concomitant]
     Indication: PRODUCT USED FOR UNKNOWN INDICATION
     Dosage: 10MG DAILY
  3. ATENOLOL [Concomitant]
     Indication: HYPERTENSION
     Dosage: 100 MG DAILY
  4. LOSARTAN POTASSIUM [Concomitant]
     Indication: HYPERTENSION
     Dosage: 100 MG DAILY
  5. OMEPRAZOLE [Concomitant]
     Indication: GASTROOESOPHAGEAL REFLUX DISEASE
     Dosage: 20 MG DAILY
  6. ALLOPURINOL [Concomitant]
     Indication: PRODUCT USED FOR UNKNOWN INDICATION
     Dosage: 300 MG DAILY
  7. PREMARIN [Concomitant]
     Indication: HORMONE REPLACEMENT THERAPY
     Dosage: 0.425 MG DAILY
  8. ESCITALOPRAM OXALATE [Concomitant]
     Indication: ANXIETY
     Dosage: 20 MG DAILY
  9. TRAZODONE HCL [Concomitant]
     Indication: INSOMNIA
     Dosage: 100 MG, 2 TABLETS AT BEDTIME
  10. HYOSCYAMINE SULFATE [Concomitant]
     Indication: GASTROINTESTINAL SOUNDS ABNORMAL
  11. SAVELLA [Concomitant]
     Indication: ANXIETY
  12. COLCRYS [Concomitant]
     Indication: CROHN^S DISEASE
     Dosage: 0.06 MG DAILY
  13. OXYCODONE [Concomitant]
     Indication: PAIN
     Dosage: 5/325 MG AS NEEDED
  14. ASPIRIN [Concomitant]
     Indication: PROPHYLAXIS
     Dosage: 81MG DAILY
  15. FOLIC ACID [Concomitant]
     Indication: NUTRITIONAL SUPPLEMENTATION
     Dosage: 1 MG DAILY
  16. CALCIUM WITH VITAMIN D [Concomitant]
     Indication: NUTRITIONAL SUPPLEMENTATION
     Dosage: DAILY

REACTIONS (2)
  - Inappropriate schedule of drug administration [Not Recovered/Not Resolved]
  - Blood creatinine increased [Not Recovered/Not Resolved]
